FAERS Safety Report 6166869-8 (Version None)
Quarter: 2009Q2

REPORT INFORMATION
  Report Type: 
  Country: None (occurrence: None)
  Receive Date: 20090424
  Receipt Date: 20090417
  Transmission Date: 20091009
  Serious: Yes (Hospitalization)
  Sender: FDA-Public Use
  Company Number: A0780185A

PATIENT
  Age: 39 Year
  Sex: Male
  Weight: 110 kg

DRUGS (4)
  1. AVANDIA [Suspect]
     Indication: DIABETES MELLITUS
     Dosage: 4MG TWICE PER DAY
     Route: 048
     Dates: start: 20000101, end: 20070601
  2. PLAVIX [Concomitant]
  3. LISINOPRIL [Concomitant]
  4. ASPIRIN [Concomitant]

REACTIONS (2)
  - CARDIAC DISORDER [None]
  - MYOCARDIAL INFARCTION [None]
